FAERS Safety Report 5051852-6 (Version None)
Quarter: 2006Q3

REPORT INFORMATION
  Report Type: 
  Country: None (occurrence: None)
  Receive Date: 20060714
  Receipt Date: 20021024
  Transmission Date: 20061208
  Serious: Yes (Life-Threatening, Hospitalization)
  Sender: FDA-Public Use
  Company Number: DE-ABBOTT-02P-062-0202920-02

PATIENT
  Sex: Male
  Weight: 82 kg

DRUGS (7)
  1. HUMIRA [Suspect]
     Indication: RHEUMATOID ARTHRITIS
     Dosage: 40 MG
     Route: 058
     Dates: start: 20001128, end: 20021114
  2. CELECOXIB [Concomitant]
     Indication: RHEUMATOID ARTHRITIS
     Route: 048
     Dates: start: 20020719
  3. ACETYLSALICYLIC ACID SRT [Concomitant]
     Indication: THROMBOSIS PROPHYLAXIS
     Route: 048
     Dates: start: 20011215
  4. CARDACE [Concomitant]
     Indication: RHEUMATOID ARTHRITIS
     Dates: start: 20011030
  5. LANSOPRAZOLE [Concomitant]
     Indication: PROPHYLAXIS AGAINST GASTROINTESTINAL ULCER
     Route: 048
     Dates: start: 19990211
  6. DIDROKIT [Concomitant]
     Indication: OSTEOPOROSIS
     Route: 048
     Dates: start: 19950201
  7. COLOXYL WITH DANTHRON [Concomitant]
     Indication: OSTEOPOROSIS
     Route: 048
     Dates: start: 19981209

REACTIONS (5)
  - CARDIAC TAMPONADE [None]
  - PERICARDIAL EFFUSION [None]
  - PERICARDIAL HAEMORRHAGE [None]
  - PERICARDITIS INFECTIVE [None]
  - SALMONELLA SEPSIS [None]
